FAERS Safety Report 8845627 (Version 9)
Quarter: 2014Q1

REPORT INFORMATION
  Report Type: Spontaneous
  Country: US (occurrence: US)
  Receive Date: 20121017
  Receipt Date: 20140321
  Transmission Date: 20141002
  Serious: Yes (Death, Hospitalization, Other)
  Sender: FDA-Public Use
  Company Number: US-B.I. PHARMACEUTICALS,INC./RIDGEFIELD-2012-BP-25588BP

PATIENT
  Age: 80 Year
  Sex: Male
  Weight: 65.77 kg

DRUGS (16)
  1. PRADAXA [Suspect]
     Indication: ANTICOAGULANT THERAPY
     Dosage: 300 MG
     Route: 048
     Dates: start: 20101130, end: 201104
  2. PRADAXA [Suspect]
     Indication: ATRIAL FIBRILLATION
     Route: 065
     Dates: start: 20110706, end: 20110714
  3. CRESTOR [Concomitant]
     Dosage: 10 MG
     Route: 048
     Dates: start: 201001, end: 201106
  4. VERAPAMIL [Concomitant]
     Dosage: 240 MG
     Route: 048
     Dates: start: 201001, end: 201106
  5. COLCRYS [Concomitant]
     Dosage: 0.6 MG
     Route: 048
     Dates: start: 201001, end: 201106
  6. BENICAR [Concomitant]
     Dosage: 40 MG
     Route: 048
     Dates: start: 201001, end: 201106
  7. NEURPATH-B [Concomitant]
     Route: 065
     Dates: start: 201001, end: 201106
  8. LIPOTRIM [Concomitant]
     Route: 065
  9. CO Q10 [Concomitant]
     Route: 065
  10. FISH OIL - OMEGA 3 [Concomitant]
     Route: 065
  11. CLARITIN [Concomitant]
     Dosage: 10 MG
     Route: 048
     Dates: start: 20081118
  12. ULTRAM [Concomitant]
     Indication: PAIN
     Dosage: 1500 MG
     Route: 065
  13. ICAPS [Concomitant]
     Route: 048
  14. LASIX [Concomitant]
     Indication: OEDEMA
     Dosage: 80 MG
     Route: 065
     Dates: start: 20101116
  15. PHYTOVITE [Concomitant]
     Route: 065
  16. ASPIRIN [Concomitant]
     Route: 065

REACTIONS (7)
  - Gastrointestinal haemorrhage [Fatal]
  - Coagulopathy [Fatal]
  - Haemorrhagic anaemia [Fatal]
  - Shock haemorrhagic [Fatal]
  - Anaemia [Unknown]
  - Upper gastrointestinal haemorrhage [Unknown]
  - Haematuria [Unknown]
